FAERS Safety Report 21225624 (Version 2)
Quarter: 2022Q3

REPORT INFORMATION
  Report Type: Spontaneous
  Country: CA (occurrence: CA)
  Receive Date: 20220818
  Receipt Date: 20220828
  Transmission Date: 20221027
  Serious: Yes (Other)
  Sender: FDA-Public Use
  Company Number: CA-JNJFOC-20220827168

PATIENT

DRUGS (14)
  1. REMICADE [Suspect]
     Active Substance: INFLIXIMAB
     Indication: Product used for unknown indication
     Route: 041
  2. CETIRIZINE HYDROCHLORIDE [Suspect]
     Active Substance: CETIRIZINE HYDROCHLORIDE
     Indication: Product used for unknown indication
     Route: 065
  3. CORTISONE ACETATE [Suspect]
     Active Substance: CORTISONE ACETATE
     Route: 065
  4. FOLIC ACID [Suspect]
     Active Substance: FOLIC ACID
     Route: 065
  5. FOSAMAX [Suspect]
     Active Substance: ALENDRONATE SODIUM
     Route: 065
  6. HUMIRA [Suspect]
     Active Substance: ADALIMUMAB
     Route: 058
  7. HYDROXYCHLOROQUINE SULFATE [Suspect]
     Active Substance: HYDROXYCHLOROQUINE SULFATE
  8. METHOTREXATE [Suspect]
     Active Substance: METHOTREXATE
  9. ORENCIA [Suspect]
     Active Substance: ABATACEPT
  10. PHTHALYLSULFATHIAZOLE [Suspect]
     Active Substance: PHTHALYLSULFATHIAZOLE
  11. RITUXIMAB [Suspect]
     Active Substance: RITUXIMAB
  12. ARAVA [Suspect]
     Active Substance: LEFLUNOMIDE
  13. CIMZIA [Suspect]
     Active Substance: CERTOLIZUMAB PEGOL
  14. ENBREL [Suspect]
     Active Substance: ETANERCEPT

REACTIONS (8)
  - Pemphigus [Unknown]
  - Rheumatoid arthritis [Unknown]
  - Systemic lupus erythematosus [Unknown]
  - Alopecia [Unknown]
  - Pain [Unknown]
  - Abdominal discomfort [Unknown]
  - Drug ineffective [Unknown]
  - Contraindicated product administered [Unknown]
